FAERS Safety Report 20016537 (Version 1)
Quarter: 2021Q4

REPORT INFORMATION
  Report Type: Spontaneous
  Country: US (occurrence: None)
  Receive Date: 20211104
  Receipt Date: 20211104
  Transmission Date: 20220303
  Serious: No
  Sender: FDA-Public Use
  Company Number: None

PATIENT
  Sex: Male

DRUGS (1)
  1. ERLEADA [Suspect]
     Active Substance: APALUTAMIDE
     Indication: Prostate cancer
     Dosage: OTHER QUANTITY : 4 TABLETS;?FREQUENCY : DAILY;?
     Route: 048
     Dates: start: 20210813

REACTIONS (1)
  - Hospitalisation [None]
